FAERS Safety Report 7092726-9 (Version None)
Quarter: 2010Q4

REPORT INFORMATION
  Report Type: 
  Country: None (occurrence: None)
  Receive Date: 20101109
  Receipt Date: 20101109
  Transmission Date: 20110411
  Serious: No
  Sender: FDA-Public Use
  Company Number: None

PATIENT
  Sex: Male
  Weight: 83.4619 kg

DRUGS (1)
  1. VALTREX [Suspect]
     Dosage: 500 MG DAILY PO
     Route: 048

REACTIONS (2)
  - PRODUCT SUBSTITUTION ISSUE [None]
  - RASH [None]
